FAERS Safety Report 17163582 (Version 1)
Quarter: 2019Q4

REPORT INFORMATION
  Report Type: Spontaneous
  Country: DE (occurrence: DE)
  Receive Date: 20191217
  Receipt Date: 20191217
  Transmission Date: 20200122
  Serious: Yes (Other)
  Sender: FDA-Public Use
  Company Number: DE-DRREDDYS-GER/GER/19/0117318

PATIENT
  Age: 60 Year
  Sex: Female

DRUGS (6)
  1. PIPAMPERON [Suspect]
     Active Substance: PIPAMPERONE HYDROCHLORIDE
     Indication: PRODUCT USED FOR UNKNOWN INDICATION
     Dosage: FROM 31.07.2019 CONTINUATION OF THE THERAPY WITH 80MG/ (AB 31.07.2019 FORTFUEHRUNG DER THERAPIE MI 8
     Dates: start: 20190712, end: 20190730
  2. QUETIAPINE. [Suspect]
     Active Substance: QUETIAPINE
     Dates: start: 20190721
  3. PIPAMPERON [Suspect]
     Active Substance: PIPAMPERONE HYDROCHLORIDE
     Dates: start: 20190701, end: 20190711
  4. EXFORGE 5 MG/160 MG [Concomitant]
     Indication: PRODUCT USED FOR UNKNOWN INDICATION
  5. QUETIAPINE. [Suspect]
     Active Substance: QUETIAPINE
     Indication: PRODUCT USED FOR UNKNOWN INDICATION
     Dates: start: 20190701, end: 20190720
  6. GABAPENTIN. [Concomitant]
     Active Substance: GABAPENTIN
     Indication: PRODUCT USED FOR UNKNOWN INDICATION

REACTIONS (1)
  - Pleurothotonus [Recovered/Resolved]

NARRATIVE: CASE EVENT DATE: 20190720
